FAERS Safety Report 7395941-X (Version None)
Quarter: 2011Q2

REPORT INFORMATION
  Report Type: 
  Country: None (occurrence: None)
  Receive Date: 20110406
  Receipt Date: 20110401
  Transmission Date: 20111010
  Serious: Yes (Hospitalization)
  Sender: FDA-Public Use
  Company Number: US-BIOGENIDEC-2011BI012536

PATIENT
  Sex: Female

DRUGS (4)
  1. AVONEX [Suspect]
     Route: 030
     Dates: start: 19961218, end: 20011201
  2. AVONEX [Suspect]
     Route: 030
     Dates: start: 20080530
  3. AVONEX [Suspect]
     Indication: MULTIPLE SCLEROSIS
     Route: 030
     Dates: start: 20110201
  4. AVONEX [Suspect]
     Route: 030
     Dates: start: 20040218, end: 20080101

REACTIONS (5)
  - MYOCARDIAL INFARCTION [None]
  - URINARY TRACT INFECTION [None]
  - HYPOTENSION [None]
  - LUNG INFECTION [None]
  - PYREXIA [None]
